FAERS Safety Report 16031586 (Version 1)
Quarter: 2019Q1

REPORT INFORMATION
  Report Type: Spontaneous
  Country: US (occurrence: US)
  Receive Date: 20190304
  Receipt Date: 20190304
  Transmission Date: 20190418
  Serious: No
  Sender: FDA-Public Use
  Company Number: US-IMPAX LABORATORIES, LLC-2018-IPXL-01765

PATIENT
  Age: 86 Year
  Sex: Female

DRUGS (2)
  1. RYTARY [Suspect]
     Active Substance: CARBIDOPA\LEVODOPA
     Dosage: 61.25/245 MG,UNK
     Route: 048
     Dates: end: 201805
  2. RYTARY [Suspect]
     Active Substance: CARBIDOPA\LEVODOPA
     Indication: PRODUCT USED FOR UNKNOWN INDICATION
     Dosage: 36.25/145MG, UNK
     Route: 048

REACTIONS (5)
  - Nausea [Recovered/Resolved]
  - Dizziness [Recovered/Resolved]
  - Vomiting [Recovered/Resolved]
  - Abdominal discomfort [Recovered/Resolved]
  - Asthenia [Recovered/Resolved]
